FAERS Safety Report 26193554 (Version 1)
Quarter: 2025Q4

REPORT INFORMATION
  Report Type: Spontaneous
  Country: RU (occurrence: RU)
  Receive Date: 20251224
  Receipt Date: 20251224
  Transmission Date: 20260118
  Serious: Yes (Other)
  Sender: ABBVIE
  Company Number: RU-ABBVIE-6602711

PATIENT
  Age: 36 Year
  Sex: Female

DRUGS (1)
  1. CEFTAROLINE [Suspect]
     Active Substance: CEFTAROLINE
     Indication: Pneumonia
     Route: 042

REACTIONS (2)
  - Respiratory failure [Unknown]
  - Drug ineffective [Unknown]
